FAERS Safety Report 10413979 (Version 2)
Quarter: 2014Q3

REPORT INFORMATION
  Report Type: Spontaneous
  Country: US (occurrence: None)
  Receive Date: 20140821
  Receipt Date: 20140828
  Transmission Date: 20150326
  Serious: Yes (Other)
  Sender: FDA-Public Use
  Company Number: AUR-APU-2014-08414

PATIENT
  Age: 46 Year
  Sex: Male
  Weight: 86.2 kg

DRUGS (6)
  1. MINOCYCLINE HYDROCHLORIDE. [Suspect]
     Active Substance: MINOCYCLINE HYDROCHLORIDE
     Indication: ROSACEA
     Dates: start: 20100101, end: 201402
  2. TRAMADOL (TRAMADOL) [Concomitant]
     Active Substance: TRAMADOL
  3. LISINOPRIL (LISINOPRIL) [Concomitant]
     Active Substance: LISINOPRIL
  4. LORAZEPAM (LORAZEPAM) [Concomitant]
     Active Substance: LORAZEPAM
  5. GABAPENTIN (GABAPENTIN) [Concomitant]
     Active Substance: GABAPENTIN
  6. VERAPAMIL [Concomitant]
     Active Substance: VERAPAMIL HYDROCHLORIDE

REACTIONS (2)
  - Condition aggravated [None]
  - Skin discolouration [None]

NARRATIVE: CASE EVENT DATE: 201306
